FAERS Safety Report 11436903 (Version 3)
Quarter: 2015Q4

REPORT INFORMATION
  Report Type: Spontaneous
  Country: US (occurrence: US)
  Receive Date: 20150831
  Receipt Date: 20151015
  Transmission Date: 20160304
  Serious: Yes (Other)
  Sender: FDA-Public Use
  Company Number: US-UNITED THERAPEUTICS-UNT-2015-008655

PATIENT
  Sex: Female
  Weight: 126.53 kg

DRUGS (4)
  1. REMODULIN [Suspect]
     Active Substance: TREPROSTINIL
     Indication: PULMONARY ARTERIAL HYPERTENSION
     Dosage: 0.071 ?G/KG, CONTINUING
     Route: 041
     Dates: start: 20100820
  2. COUMADIN [Concomitant]
     Active Substance: WARFARIN SODIUM
     Indication: PRODUCT USED FOR UNKNOWN INDICATION
  3. REMODULIN [Suspect]
     Active Substance: TREPROSTINIL
     Dosage: 0.071 ?G/KG, CONTINUING
     Route: 041
  4. REVATIO [Concomitant]
     Active Substance: SILDENAFIL CITRATE
     Indication: PRODUCT USED FOR UNKNOWN INDICATION

REACTIONS (15)
  - Atrial tachycardia [Unknown]
  - Ankle fracture [Unknown]
  - Weight decreased [Unknown]
  - Fatigue [Unknown]
  - Heart rate irregular [Unknown]
  - Oedema [Unknown]
  - Atrial fibrillation [Unknown]
  - Depression [Unknown]
  - Insomnia [Unknown]
  - Somnolence [Unknown]
  - Heart rate increased [Unknown]
  - Injection site discharge [Unknown]
  - Infusion site erythema [Unknown]
  - Cystitis [Unknown]
  - Dizziness [Unknown]

NARRATIVE: CASE EVENT DATE: 2015
